FAERS Safety Report 6782067-9 (Version None)
Quarter: 2010Q2

REPORT INFORMATION
  Report Type: 
  Country: None (occurrence: None)
  Receive Date: 20100618
  Receipt Date: 20100618
  Transmission Date: 20101027
  Serious: No
  Sender: FDA-Public Use
  Company Number: None

PATIENT
  Sex: Female

DRUGS (1)
  1. DORZOLOMIDE/TIMOLOL 2% [Suspect]
     Indication: GLAUCOMA
     Dosage: 1GTT BID EYE

REACTIONS (3)
  - HEADACHE [None]
  - NASAL OEDEMA [None]
  - POSTNASAL DRIP [None]
